FAERS Safety Report 6258425-8 (Version None)
Quarter: 2009Q3

REPORT INFORMATION
  Report Type: 
  Country: None (occurrence: None)
  Receive Date: 20090706
  Receipt Date: 20090706
  Transmission Date: 20100115
  Serious: Yes (Hospitalization)
  Sender: FDA-Public Use
  Company Number: None

PATIENT
  Sex: Male
  Weight: 107 kg

DRUGS (5)
  1. VANCOMYCIN [Suspect]
     Indication: OSTEOMYELITIS
     Dosage: 1250 MG EVERY 8 HOURS IV
     Route: 042
     Dates: start: 20090424
  2. DIAZEPAM [Concomitant]
  3. DOCUSATE [Concomitant]
  4. OXYCODONE [Concomitant]
  5. PREGABALIN [Concomitant]

REACTIONS (2)
  - DRUG TOXICITY [None]
  - RENAL FAILURE ACUTE [None]
